FAERS Safety Report 26066831 (Version 2)
Quarter: 2025Q4

REPORT INFORMATION
  Report Type: Spontaneous
  Country: EU (occurrence: EU)
  Receive Date: 20251119
  Receipt Date: 20251224
  Transmission Date: 20260118
  Serious: Yes (Life-Threatening, Hospitalization)
  Sender: PURDUE
  Company Number: EU-ORPHANEU-2025007808

PATIENT
  Age: 14 Year
  Sex: Male
  Weight: 46 kg

DRUGS (7)
  1. MORPHINE SULFATE [Suspect]
     Active Substance: MORPHINE SULFATE
     Indication: Pain
     Dosage: UNK
     Route: 065
     Dates: start: 20251020, end: 20251023
  2. DINUTUXIMAB BETA [Suspect]
     Active Substance: DINUTUXIMAB BETA
     Indication: Neuroblastoma recurrent
     Dosage: UNK
     Route: 042
     Dates: start: 20251013, end: 202510
  3. DINUTUXIMAB BETA [Suspect]
     Active Substance: DINUTUXIMAB BETA
     Dosage: REMAINING INFUSION WAS COMPLETED WITHOUT FURTHER COMPLICATIONS
     Route: 042
     Dates: start: 202510, end: 20251027
  4. DINUTUXIMAB BETA [Suspect]
     Active Substance: DINUTUXIMAB BETA
     Dosage: 70 MILLIGRAM/SQ. METER (MG/M2) (1 WEEK OF 2ML/H)
     Route: 042
     Dates: start: 20251020, end: 20251024
  5. DINUTUXIMAB BETA [Suspect]
     Active Substance: DINUTUXIMAB BETA
     Dosage: 70 MILLIGRAM/SQ. METER (MG/M2) (1 WEEK OF 2ML/H) (STOPPED FOR 45 MINUTES)
     Route: 042
     Dates: start: 20251024, end: 20251027
  6. TOPOTECAN [Suspect]
     Active Substance: TOPOTECAN HYDROCHLORIDE
     Indication: Neuroblastoma recurrent
     Dosage: TOTEM 3
     Route: 065
     Dates: start: 20251013, end: 20251020
  7. TEMOZOLOMIDE [Suspect]
     Active Substance: TEMOZOLOMIDE
     Indication: Neuroblastoma recurrent
     Dosage: TOTEM 3
     Route: 065
     Dates: start: 20251013, end: 20251020

REACTIONS (3)
  - Myelitis transverse [Recovering/Resolving]
  - Encephalopathy [Recovering/Resolving]
  - Off label use [Recovered/Resolved]

NARRATIVE: CASE EVENT DATE: 20251001
